FAERS Safety Report 21995385 (Version 1)
Quarter: 2023Q1

REPORT INFORMATION
  Report Type: Other
  Country: US (occurrence: US)
  Receive Date: 20230215
  Receipt Date: 20230215
  Transmission Date: 20230418
  Serious: Yes (Hospitalization, Disabling, Other)
  Sender: FDA-Public Use
  Company Number: US-DEXPHARM-20230355

PATIENT
  Age: 63 Year
  Sex: Male

DRUGS (4)
  1. DEXAMETHASONE [Suspect]
     Active Substance: DEXAMETHASONE
  2. LENALIDOMIDE [Suspect]
     Active Substance: LENALIDOMIDE
  3. BORTEZOMIB [Suspect]
     Active Substance: BORTEZOMIB
  4. CYCLOPHOSPHAMIDE [Suspect]
     Active Substance: CYCLOPHOSPHAMIDE
     Dosage: ONE DOSE OF INTERMEDIATE-DOSE CYCLOPHOSPHAMIDE (100MG/M2).

REACTIONS (2)
  - Lymphoedema [Recovering/Resolving]
  - Embolism [Recovering/Resolving]
